FAERS Safety Report 19574726 (Version 1)
Quarter: 2021Q3

REPORT INFORMATION
  Report Type: Spontaneous
  Country: GR (occurrence: GR)
  Receive Date: 20210719
  Receipt Date: 20210719
  Transmission Date: 20211014
  Serious: Yes (Other)
  Sender: FDA-Public Use
  Company Number: GR-LOTUS-2021-LOTUS-000705

PATIENT
  Age: 54 Year
  Sex: Male

DRUGS (2)
  1. METHOTREXATE. [Suspect]
     Active Substance: METHOTREXATE
     Indication: MYASTHENIA GRAVIS
  2. PREDNISOLONE. [Concomitant]
     Active Substance: PREDNISOLONE
     Indication: MYASTHENIA GRAVIS

REACTIONS (2)
  - Erectile dysfunction [Recovered/Resolved]
  - Libido decreased [Recovered/Resolved]
